FAERS Safety Report 17187901 (Version 1)
Quarter: 2019Q4

REPORT INFORMATION
  Report Type: Spontaneous
  Country: CN (occurrence: CN)
  Receive Date: 20191221
  Receipt Date: 20191221
  Transmission Date: 20200122
  Serious: Yes (Death, Hospitalization, Other)
  Sender: FDA-Public Use
  Company Number: CN-ROCHE-2501459

PATIENT
  Age: 67 Year

DRUGS (2)
  1. OXALIPLATIN. [Concomitant]
     Active Substance: OXALIPLATIN
     Indication: GASTROINTESTINAL CARCINOMA
     Route: 065
     Dates: start: 201707
  2. XELODA [Suspect]
     Active Substance: CAPECITABINE
     Indication: GASTROINTESTINAL CARCINOMA
     Route: 048
     Dates: start: 201707

REACTIONS (5)
  - Diarrhoea [Recovered/Resolved]
  - Haemoptysis [Unknown]
  - Pneumonitis [Unknown]
  - Pulmonary embolism [Unknown]
  - Death [Fatal]
